FAERS Safety Report 9214119 (Version 1)
Quarter: 2013Q1

REPORT INFORMATION
  Report Type: Spontaneous
  Country: US (occurrence: None)
  Receive Date: 20120827
  Receipt Date: 20120827
  Transmission Date: 20140127
  Serious: No
  Sender: FDA-Public Use
  Company Number: 352085

PATIENT
  Age: 61 Year
  Sex: Female
  Weight: 97.1 kg

DRUGS (4)
  1. VICTOZA (LIRAGLUTIDE) SOLUTION FOR INJECTION, 6 MG/ML [Suspect]
     Indication: TYPE 2 DIABETES MELLITUS
     Route: 058
     Dates: start: 20110104, end: 20120514
  2. PRAVASTATIN (PRAVASTATIN) [Concomitant]
  3. NEXIUM (ESOMEPRAZOLE MAGNESIUM) [Concomitant]
  4. BABY ASPIRIN (ACETYLSALICYLIC ACID) [Concomitant]

REACTIONS (1)
  - Hepatic lesion [None]
